FAERS Safety Report 4497069-5 (Version None)
Quarter: 2004Q4

REPORT INFORMATION
  Report Type: 
  Country: None (occurrence: None)
  Receive Date: 20041110
  Receipt Date: 20041028
  Transmission Date: 20050328
  Serious: Yes (Hospitalization)
  Sender: FDA-Public Use
  Company Number: DE-JNJFOC-20041008530

PATIENT
  Age: 65 Year
  Sex: Female

DRUGS (6)
  1. REMICADE [Suspect]
     Indication: DRUG USE FOR UNKNOWN INDICATION
     Route: 042
  2. PREDNISOLONE [Concomitant]
     Route: 049
  3. METHOTREXATE [Concomitant]
  4. PIROXICAM [Concomitant]
  5. ENBREL [Concomitant]
  6. ESOMEPRAZOLE [Concomitant]

REACTIONS (1)
  - BREAST CANCER [None]
